FAERS Safety Report 23367146 (Version 1)
Quarter: 2024Q1

REPORT INFORMATION
  Report Type: Other
  Country: KR (occurrence: KR)
  Receive Date: 20240104
  Receipt Date: 20240104
  Transmission Date: 20240410
  Serious: Yes (Other)
  Sender: FDA-Public Use
  Company Number: KR-ASTELLAS-2024US000256

PATIENT
  Sex: Male

DRUGS (2)
  1. MIRABEGRON [Suspect]
     Active Substance: MIRABEGRON
     Indication: Dysuria
     Route: 065
     Dates: start: 20210826, end: 20210830
  2. QUETIAPINE [Concomitant]
     Active Substance: QUETIAPINE
     Indication: Delirium
     Route: 065
     Dates: start: 20210826, end: 20210831

REACTIONS (1)
  - Acute kidney injury [Recovered/Resolved]

NARRATIVE: CASE EVENT DATE: 20210827
